FAERS Safety Report 5773295-X (Version None)
Quarter: 2008Q2

REPORT INFORMATION
  Report Type: 
  Country: None (occurrence: None)
  Receive Date: 20080601
  Receipt Date: 20080324
  Transmission Date: 20081010
  Serious: No
  Sender: FDA-Public Use
  Company Number: US200803005504

PATIENT
  Sex: Female

DRUGS (4)
  1. BYETTA [Suspect]
  2. H2-RECEPTOR ANTAGONISTS [Concomitant]
  3. ANTACID /00082501/ (ALUMINIUM HYDROXIDE, MAGNESIUM HYDROXIDE) [Concomitant]
  4. ANESTHETICS NOS [Concomitant]

REACTIONS (2)
  - ABDOMINAL DISTENSION [None]
  - SURGERY [None]
